FAERS Safety Report 24363891 (Version 1)
Quarter: 2024Q3

REPORT INFORMATION
  Report Type: Spontaneous
  Country: FR (occurrence: FR)
  Receive Date: 20240925
  Receipt Date: 20240925
  Transmission Date: 20241017
  Serious: Yes (Life-Threatening)
  Sender: ELI LILLY AND CO
  Company Number: None

PATIENT
  Age: 59 Year
  Sex: Male
  Weight: 68 kg

DRUGS (1)
  1. ERBITUX [Suspect]
     Active Substance: CETUXIMAB
     Indication: Squamous cell carcinoma of pharynx
     Dosage: 400 MG/M2, OTHER (1 CYCLE)
     Route: 042
     Dates: start: 20240711

REACTIONS (1)
  - Acute myocardial infarction [Recovered/Resolved]

NARRATIVE: CASE EVENT DATE: 20240806
